FAERS Safety Report 6054194-5 (Version None)
Quarter: 2009Q1

REPORT INFORMATION
  Report Type: 
  Country: None (occurrence: None)
  Receive Date: 20090127
  Receipt Date: 20090120
  Transmission Date: 20090719
  Serious: Yes (Hospitalization, Other)
  Sender: FDA-Public Use
  Company Number: US-ELI_LILLY_AND_COMPANY-US200811002931

PATIENT
  Sex: Female
  Weight: 99.773 kg

DRUGS (9)
  1. BYETTA [Suspect]
     Indication: TYPE 2 DIABETES MELLITUS
     Dosage: 10 UG, 2/D
     Route: 058
     Dates: start: 20061109, end: 20061214
  2. BYETTA [Suspect]
     Dosage: 5 UG, 2/D
     Route: 058
     Dates: start: 20080312, end: 20080813
  3. BYETTA [Suspect]
     Dosage: 10 UG, 2/D
     Route: 058
     Dates: start: 20080820, end: 20090115
  4. ACTOS [Concomitant]
     Indication: TYPE 2 DIABETES MELLITUS
     Dosage: 45 MG, DAILY (1/D)
     Route: 048
     Dates: end: 20080701
  5. VERAPAMIL [Concomitant]
     Indication: CARDIAC DISORDER
     Dates: end: 20080701
  6. AMIODARONE HCL [Concomitant]
     Dosage: 100 MG, DAILY (1/D)
  7. NIFEDIPINE [Concomitant]
     Dosage: 60 MG, DAILY (1/D)
     Route: 048
  8. CARVEDILOL [Concomitant]
     Indication: CARDIAC DISORDER
     Dosage: 60 MG, DAILY (1/D)
  9. LANTUS [Concomitant]

REACTIONS (9)
  - ATRIAL FIBRILLATION [None]
  - BLOOD GLUCOSE INCREASED [None]
  - DRUG INEFFECTIVE [None]
  - FLUID RETENTION [None]
  - GLYCOSYLATED HAEMOGLOBIN INCREASED [None]
  - HEADACHE [None]
  - HYPERTENSION [None]
  - INJECTION SITE IRRITATION [None]
  - MACULAR DEGENERATION [None]
